FAERS Safety Report 17038797 (Version 1)
Quarter: 2019Q4

REPORT INFORMATION
  Report Type: Spontaneous
  Country: JP (occurrence: JP)
  Receive Date: 20191115
  Receipt Date: 20191115
  Transmission Date: 20200122
  Serious: Yes (Death, Other)
  Sender: FDA-Public Use
  Company Number: JP-BAYER-2019-204614

PATIENT
  Age: 63 Year
  Sex: Male

DRUGS (1)
  1. NEXAVAR [Suspect]
     Active Substance: SORAFENIB
     Indication: HEPATOCELLULAR CARCINOMA
     Dosage: UNK
     Route: 048
     Dates: start: 2014, end: 2015

REACTIONS (9)
  - Prothrombin time prolonged [None]
  - Hepatocellular carcinoma [None]
  - Alanine aminotransferase increased [None]
  - Anaemia [None]
  - Death [Fatal]
  - Hypertension [None]
  - Aspartate aminotransferase increased [None]
  - Condition aggravated [None]
  - Blood bilirubin increased [None]

NARRATIVE: CASE EVENT DATE: 20150604
